FAERS Safety Report 9111638 (Version 1)
Quarter: 2013Q1

REPORT INFORMATION
  Report Type: Spontaneous
  Country: US (occurrence: US)
  Receive Date: 20130219
  Receipt Date: 20130219
  Transmission Date: 20140127
  Serious: No
  Sender: FDA-Public Use
  Company Number: US-BRISTOL-MYERS SQUIBB COMPANY-16660177

PATIENT
  Age: 41 Year
  Sex: Female

DRUGS (5)
  1. ORENCIA [Suspect]
     Indication: RHEUMATOID ARTHRITIS
     Dosage: LAST INF ON 29MAY12
     Route: 058
     Dates: start: 201203
  2. GABAPENTIN [Concomitant]
  3. CELEBREX [Concomitant]
  4. METAXALONE [Concomitant]
  5. VOLTAREN [Concomitant]

REACTIONS (1)
  - Rash [Recovered/Resolved]
